FAERS Safety Report 6566813-5 (Version None)
Quarter: 2010Q1

REPORT INFORMATION
  Report Type: 
  Country: None (occurrence: None)
  Receive Date: 20100202
  Receipt Date: 20100125
  Transmission Date: 20100710
  Serious: Yes (Hospitalization)
  Sender: FDA-Public Use
  Company Number: A0788543A

PATIENT
  Age: 59 Year
  Sex: Female
  Weight: 62.7 kg

DRUGS (3)
  1. AVANDIA [Suspect]
     Indication: TYPE 2 DIABETES MELLITUS
     Dosage: 4MG TWICE PER DAY
     Route: 048
     Dates: start: 20011101, end: 20051101
  2. METFORMIN HCL [Concomitant]
  3. GLIPIZIDE [Concomitant]

REACTIONS (9)
  - ARRHYTHMIA [None]
  - CARDIOVASCULAR DISORDER [None]
  - DIABETES MELLITUS INADEQUATE CONTROL [None]
  - ECONOMIC PROBLEM [None]
  - MYOCARDIAL INFARCTION [None]
  - PAIN [None]
  - PERIPHERAL ISCHAEMIA [None]
  - PERIPHERAL VASCULAR DISORDER [None]
  - SURGERY [None]
